FAERS Safety Report 14480992 (Version 2)
Quarter: 2018Q1

REPORT INFORMATION
  Report Type: Report from Study
  Country: PT (occurrence: PT)
  Receive Date: 20180202
  Receipt Date: 20180321
  Transmission Date: 20180509
  Serious: Yes (Other)
  Sender: FDA-Public Use
  Company Number: PT-JNJFOC-20180132892

PATIENT
  Age: 65 Year
  Sex: Male

DRUGS (11)
  1. METHOTREXATE. [Suspect]
     Active Substance: METHOTREXATE
     Indication: CHRONIC LYMPHOCYTIC LEUKAEMIA
     Dosage: SYSTEMIC HIGH DOSE OF 3 G/M2 UNTIL MAY-2016
     Route: 065
     Dates: start: 201603, end: 201605
  2. CYTARABINE. [Suspect]
     Active Substance: CYTARABINE
     Indication: CHRONIC LYMPHOCYTIC LEUKAEMIA
     Dosage: LIPOSOMAL CYTARABINE-NO RESPONSE,MIGHT LED TO WORSENED NEUROLOGIC SYMPTOMS-DUE TO TOXIC MYELITIS.
     Route: 065
     Dates: start: 20151110
  3. IBRUTINIB [Suspect]
     Active Substance: IBRUTINIB
     Indication: CHRONIC LYMPHOCYTIC LEUKAEMIA
     Dosage: WEEKLY INCREASED TO 280 MG/DAY.
     Route: 048
  4. CYTARABINE. [Suspect]
     Active Substance: CYTARABINE
     Indication: CHRONIC LYMPHOCYTIC LEUKAEMIA
     Dosage: ADMINISTERED 15 TIMES, BI-WEEKLY-NO POSITIVE RESPONSE
     Route: 065
     Dates: start: 201510
  5. IBRUTINIB [Suspect]
     Active Substance: IBRUTINIB
     Indication: CHRONIC LYMPHOCYTIC LEUKAEMIA
     Dosage: DISCONTINUED FOR ADDITIONAL ONE MONTH
     Route: 048
     Dates: start: 201603
  6. METHOTREXATE. [Suspect]
     Active Substance: METHOTREXATE
     Indication: CHRONIC LYMPHOCYTIC LEUKAEMIA
     Dosage: HIGH DOSE, TOTAL 6 CYCLES.12 MG.
     Route: 065
     Dates: start: 201510
  7. IBRUTINIB [Suspect]
     Active Substance: IBRUTINIB
     Indication: CHRONIC LYMPHOCYTIC LEUKAEMIA
     Route: 048
     Dates: start: 201611
  8. PREDNISOLONE. [Suspect]
     Active Substance: PREDNISOLONE
     Indication: CHRONIC LYMPHOCYTIC LEUKAEMIA
     Dosage: ADMINISTERED 15 TIMES, BI-WEEKLY-NO POSITIVE RESPONSE
     Route: 065
     Dates: start: 201510
  9. IBRUTINIB [Suspect]
     Active Substance: IBRUTINIB
     Indication: CHRONIC LYMPHOCYTIC LEUKAEMIA
     Dosage: STOP DATE TWO MONTHS LATER FROM OCT-2015
     Route: 048
     Dates: start: 201510, end: 201512
  10. CYTARABINE. [Suspect]
     Active Substance: CYTARABINE
     Indication: CHRONIC LYMPHOCYTIC LEUKAEMIA
     Dosage: LIPOSOMAL CYTARABINE-NO RESPONSE,MIGHT LED TO WORSENED NEUROLOGIC SYMPTOMS-DUE TO TOXIC MYELITIS.
     Route: 065
     Dates: start: 20151124
  11. IBRUTINIB [Suspect]
     Active Substance: IBRUTINIB
     Indication: CHRONIC LYMPHOCYTIC LEUKAEMIA
     Dosage: WEEKLY INCREASED AND RE-INITIATED AT 420 MG AND SECOND INTERRUPTION IN OCT-2016
     Route: 048
     Dates: end: 201610

REACTIONS (4)
  - Haematuria [Recovered/Resolved]
  - Product use in unapproved indication [Unknown]
  - Intestinal pseudo-obstruction [Recovered/Resolved]
  - Off label use [Unknown]

NARRATIVE: CASE EVENT DATE: 201510
